FAERS Safety Report 10876898 (Version 1)
Quarter: 2015Q1

REPORT INFORMATION
  Report Type: Spontaneous
  Country: FR (occurrence: FR)
  Receive Date: 20150302
  Receipt Date: 20150302
  Transmission Date: 20150721
  Serious: Yes (Hospitalization, Other)
  Sender: FDA-Public Use
  Company Number: FR-AUROBINDO-AUR-APL-2015-01242

PATIENT
  Age: 39 Year
  Sex: Male

DRUGS (5)
  1. VORICONAZOLE. [Suspect]
     Active Substance: VORICONAZOLE
     Indication: CANDIDA INFECTION
     Dosage: 200 MG, TWO TIMES A DAY
     Route: 065
     Dates: start: 201112
  2. FLUCONAZOLE 200MG [Suspect]
     Active Substance: FLUCONAZOLE
     Dosage: 200 MG, ONCE A DAY
     Route: 048
     Dates: start: 201301
  3. PIPERACILLIN/TAZOBACTAM [Suspect]
     Active Substance: PIPERACILLIN SODIUM\TAZOBACTAM SODIUM
     Indication: CANDIDA INFECTION
     Dosage: UNK
     Route: 065
  4. VANCOMYCIN [Suspect]
     Active Substance: VANCOMYCIN
     Indication: CANDIDA INFECTION
     Dosage: UNK
     Route: 065
  5. FLUCONAZOLE 200MG [Suspect]
     Active Substance: FLUCONAZOLE
     Indication: CANDIDA INFECTION
     Dosage: 200 MG, ONCE A DAY
     Route: 048
     Dates: start: 201109

REACTIONS (9)
  - Oliguria [Unknown]
  - Blood creatine increased [Recovered/Resolved]
  - Drug resistance [Recovered/Resolved]
  - Tenderness [Unknown]
  - Neutrophilia [Unknown]
  - Candiduria [Recovered/Resolved]
  - Hydronephrosis [Unknown]
  - C-reactive protein abnormal [Unknown]
  - Dysuria [Unknown]

NARRATIVE: CASE EVENT DATE: 201105
